FAERS Safety Report 25013505 (Version 2)
Quarter: 2025Q2

REPORT INFORMATION
  Report Type: Spontaneous
  Country: US (occurrence: US)
  Receive Date: 20250226
  Receipt Date: 20250630
  Transmission Date: 20250717
  Serious: No
  Sender: UCB
  Company Number: US-UCBSA-2024048729

PATIENT
  Age: 26 Year
  Sex: Male

DRUGS (6)
  1. KEPPRA [Suspect]
     Active Substance: LEVETIRACETAM
     Indication: Seizure prophylaxis
  2. KEPPRA [Suspect]
     Active Substance: LEVETIRACETAM
     Indication: Off label use
  3. MIDAZOLAM [Suspect]
     Active Substance: MIDAZOLAM
     Indication: Seizure prophylaxis
  4. MIDAZOLAM [Suspect]
     Active Substance: MIDAZOLAM
     Indication: Off label use
  5. CEFTRIAXONE [Concomitant]
     Active Substance: CEFTRIAXONE
     Indication: Meningitis bacterial
  6. VANCOMYCIN [Concomitant]
     Active Substance: VANCOMYCIN
     Indication: Meningitis bacterial

REACTIONS (2)
  - Off label use [Unknown]
  - Multiple-drug resistance [Unknown]
